FAERS Safety Report 21843477 (Version 1)
Quarter: 2023Q1

REPORT INFORMATION
  Report Type: Spontaneous
  Country: US (occurrence: US)
  Receive Date: 20230110
  Receipt Date: 20230110
  Transmission Date: 20230417
  Serious: No
  Sender: FDA-Public Use
  Company Number: US-drreddys-SPO/USA/22/0159070

PATIENT
  Age: 19 Year

DRUGS (2)
  1. ZENATANE [Suspect]
     Active Substance: ISOTRETINOIN
     Indication: Acne
     Dosage: RMA ISSUE DATE:  17 AUGUST 2021 12:00:00 AM, 11 OCTOBER 2022 12:01:09 PM; 14 NOVEMBER 2022 02:23:02
  2. ZENATANE [Suspect]
     Active Substance: ISOTRETINOIN
     Dosage: RMA ISSUE DATE: 17 AUGUST 2021 12:00:00 AM

REACTIONS (1)
  - Blood triglycerides increased [Unknown]
